FAERS Safety Report 9942357 (Version 2)
Quarter: 2014Q4

REPORT INFORMATION
  Report Type: Spontaneous
  Country: US (occurrence: US)
  Receive Date: 20140303
  Receipt Date: 20141008
  Transmission Date: 20150529
  Serious: Yes (Other)
  Sender: FDA-Public Use
  Company Number: US-PFIZER INC-2014058544

PATIENT
  Age: 67 Year
  Sex: Female
  Weight: 82 kg

DRUGS (3)
  1. LIPITOR [Suspect]
     Active Substance: ATORVASTATIN CALCIUM
     Indication: BLOOD CHOLESTEROL INCREASED
     Dosage: 20 MG, 1X/DAY
     Route: 048
     Dates: start: 2004
  2. AMLODIPINE/BENAZEPRIL [Concomitant]
     Indication: HYPERTENSION
     Dosage: 10/20MG, ONCE DAILY
     Dates: start: 2007
  3. MAXZIDE [Concomitant]
     Active Substance: HYDROCHLOROTHIAZIDE\TRIAMTERENE
     Indication: HYPERTENSION
     Dosage: 37.5/25MG, HALF DOSE ONCE DAILY
     Dates: start: 199808

REACTIONS (2)
  - Type 2 diabetes mellitus [Not Recovered/Not Resolved]
  - Emotional distress [Not Recovered/Not Resolved]

NARRATIVE: CASE EVENT DATE: 2008
